FAERS Safety Report 4539477-X (Version None)
Quarter: 2004Q4

REPORT INFORMATION
  Report Type: 
  Country: None (occurrence: None)
  Receive Date: 20041228
  Receipt Date: 20041223
  Transmission Date: 20050328
  Serious: Yes (Hospitalization)
  Sender: FDA-Public Use
  Company Number: 200414818FR

PATIENT
  Age: 87 Year
  Sex: Male
  Weight: 70 kg

DRUGS (14)
  1. PREDNISONE TAB [Suspect]
     Route: 048
  2. LASILIX [Suspect]
     Route: 048
  3. CHLORAMINOPHENE [Suspect]
     Route: 048
  4. MOPRAL [Suspect]
     Route: 048
     Dates: end: 20041203
  5. CALCIPARINE [Suspect]
     Indication: PHLEBITIS
     Route: 058
  6. DAFALGAN [Suspect]
     Route: 048
  7. ANDROCUR [Concomitant]
  8. PREVISCAN [Concomitant]
     Route: 048
  9. LOVENOX [Concomitant]
     Indication: PHLEBITIS
     Route: 058
  10. BRICANYL [Concomitant]
  11. IMOVANE [Concomitant]
     Route: 048
  12. FORLAX [Concomitant]
  13. XATRAL [Concomitant]
  14. KAYEXALATE [Concomitant]

REACTIONS (4)
  - HAEMORRHAGE [None]
  - PHLEBITIS [None]
  - RENAL CYST [None]
  - RENAL FAILURE ACUTE [None]
